FAERS Safety Report 16617598 (Version 2)
Quarter: 2019Q3

REPORT INFORMATION
  Report Type: Spontaneous
  Country: DE (occurrence: DE)
  Receive Date: 20190723
  Receipt Date: 20190816
  Transmission Date: 20191004
  Serious: Yes (Other)
  Sender: FDA-Public Use
  Company Number: DE-AMGEN-DEUSP2019114986

PATIENT
  Age: 47 Year
  Sex: Female

DRUGS (3)
  1. FILGRASTIM [Suspect]
     Active Substance: FILGRASTIM
     Indication: PYREXIA
  2. FILGRASTIM [Suspect]
     Active Substance: FILGRASTIM
     Indication: STAPHYLOCOCCAL INFECTION
  3. FILGRASTIM [Suspect]
     Active Substance: FILGRASTIM
     Indication: AUTOIMMUNE NEUTROPENIA
     Dosage: 1.6 MICROGRAM/KILOGRAM, QD
     Route: 058

REACTIONS (3)
  - Nystagmus [Recovered/Resolved]
  - Off label use [Unknown]
  - Psychotic disorder [Recovered/Resolved]
